FAERS Safety Report 9798941 (Version 1)
Quarter: 2013Q4

REPORT INFORMATION
  Report Type: Spontaneous
  Country: US (occurrence: None)
  Receive Date: 20131231
  Receipt Date: 20131231
  Transmission Date: 20140711
  Serious: Yes (Hospitalization)
  Sender: FDA-Public Use
  Company Number: 2013P1021973

PATIENT
  Age: 71 Year
  Sex: Female

DRUGS (2)
  1. BUPROPION [Suspect]
     Route: 048
  2. LAMOTRIGINE [Suspect]
     Route: 048

REACTIONS (6)
  - Intentional overdose [None]
  - Mental status changes [None]
  - Unresponsive to stimuli [None]
  - Agitation [None]
  - Status epilepticus [None]
  - Myoclonus [None]
